FAERS Safety Report 9316465 (Version 1)
Quarter: 2013Q2

REPORT INFORMATION
  Report Type: Spontaneous
  Country: US (occurrence: US)
  Receive Date: 20130530
  Receipt Date: 20130530
  Transmission Date: 20140414
  Serious: Yes (Hospitalization)
  Sender: FDA-Public Use
  Company Number: US-BAYER-2013-065969

PATIENT
  Age: 19 Year
  Sex: Female
  Weight: 74.83 kg

DRUGS (4)
  1. YAZ [Suspect]
  2. ZOLOFT [Concomitant]
     Dosage: 100 MG, UNK
  3. VITAMIN D [Concomitant]
     Dosage: 1 TAB DAILY
     Route: 048
  4. MULTIVITAMIN [Concomitant]
     Dosage: 1 TAB DAILY
     Route: 048

REACTIONS (3)
  - Pulmonary embolism [None]
  - Pulmonary infarction [None]
  - Pleural effusion [None]
